FAERS Safety Report 21055777 (Version 3)
Quarter: 2022Q3

REPORT INFORMATION
  Report Type: Report from Study
  Country: US (occurrence: US)
  Receive Date: 20220708
  Receipt Date: 20220925
  Transmission Date: 20221027
  Serious: No
  Sender: FDA-Public Use
  Company Number: US-BIOVITRUM-2022US07040

PATIENT
  Age: 79 Year
  Sex: Female

DRUGS (3)
  1. DOPTELET [Suspect]
     Active Substance: AVATROMBOPAG MALEATE
     Indication: Immune thrombocytopenia
     Dates: start: 20220512
  2. DOPTELET [Suspect]
     Active Substance: AVATROMBOPAG MALEATE
     Dates: start: 20220512
  3. DOPTELET [Suspect]
     Active Substance: AVATROMBOPAG MALEATE
     Dates: start: 202205

REACTIONS (10)
  - Blood test abnormal [Unknown]
  - Somnolence [Unknown]
  - Rash erythematous [Unknown]
  - Abdominal pain upper [Unknown]
  - Food allergy [Unknown]
  - Gingival swelling [Unknown]
  - Chills [Unknown]
  - Asthenia [Unknown]
  - Rash pruritic [Unknown]
  - Off label use [Unknown]

NARRATIVE: CASE EVENT DATE: 20220512
